FAERS Safety Report 4300253-4 (Version None)
Quarter: 2004Q1

REPORT INFORMATION
  Report Type: 
  Country: None (occurrence: None)
  Receive Date: 20040218
  Receipt Date: 20040202
  Transmission Date: 20041129
  Serious: Yes (Life-Threatening, Hospitalization)
  Sender: FDA-Public Use
  Company Number: EWC040137517

PATIENT
  Age: 70 Year
  Sex: Male
  Weight: 85 kg

DRUGS (5)
  1. XIGRIS [Suspect]
     Indication: SEPSIS
     Dosage: 24 UG/KG/HR
     Dates: start: 20031228, end: 20031229
  2. SOLU-CORTEF [Concomitant]
  3. MERONEM (MEROPENEM) [Concomitant]
  4. VANCOMYCIN [Concomitant]
  5. MARCUMAR [Concomitant]

REACTIONS (8)
  - DISSEMINATED INTRAVASCULAR COAGULATION [None]
  - FIBRIN D DIMER INCREASED [None]
  - HAEMORRHAGE [None]
  - HEPATIC FAILURE [None]
  - PROTHROMBIN LEVEL DECREASED [None]
  - PULMONARY ALVEOLAR HAEMORRHAGE [None]
  - PULMONARY HAEMORRHAGE [None]
  - THROMBOCYTOPENIA [None]
